FAERS Safety Report 15239489 (Version 1)
Quarter: 2018Q3

REPORT INFORMATION
  Report Type: Spontaneous
  Country: CH (occurrence: CH)
  Receive Date: 20180803
  Receipt Date: 20180803
  Transmission Date: 20181010
  Serious: Yes (Other)
  Sender: FDA-Public Use
  Company Number: CH-009507513-1807CHE007948

PATIENT
  Age: 81 Year
  Sex: Male
  Weight: 72 kg

DRUGS (7)
  1. MARCOUMAR [Concomitant]
     Active Substance: PHENPROCOUMON
     Dosage: ACCORDING TO BOOK
  2. ZEPATIER [Suspect]
     Active Substance: ELBASVIR\GRAZOPREVIR
     Indication: HEPATIC CIRRHOSIS
     Dosage: UNK
     Route: 048
     Dates: start: 201702, end: 201704
  3. ZEPATIER [Suspect]
     Active Substance: ELBASVIR\GRAZOPREVIR
     Indication: HEPATITIS C VIRUS TEST POSITIVE
  4. CITALOPRAM [Concomitant]
     Active Substance: CITALOPRAM HYDROBROMIDE
     Dosage: 20 MG, HALF TABLET
  5. LISINOPRIL. [Concomitant]
     Active Substance: LISINOPRIL
     Dosage: 5 MG, UNK
  6. TORSEMIDE. [Concomitant]
     Active Substance: TORSEMIDE
     Dosage: 20 MG, UNK
  7. LAXOBERON [Concomitant]
     Active Substance: SODIUM PICOSULFATE
     Dosage: 3?4 DROPS, IN RESERVE

REACTIONS (4)
  - Hepatic cirrhosis [Not Recovered/Not Resolved]
  - Treatment failure [Unknown]
  - Hepatitis C [Unknown]
  - Gene mutation [Unknown]

NARRATIVE: CASE EVENT DATE: 2017
